FAERS Safety Report 9135479 (Version 2)
Quarter: 2013Q4

REPORT INFORMATION
  Report Type: Spontaneous
  Country: GB (occurrence: GB)
  Receive Date: 20130304
  Receipt Date: 20131022
  Transmission Date: 20140711
  Serious: Yes (Hospitalization)
  Sender: FDA-Public Use
  Company Number: PHHY2013GB018223

PATIENT
  Age: 56 Year
  Sex: Female
  Weight: 91 kg

DRUGS (10)
  1. INDAPAMIDE [Suspect]
     Indication: HYPERTENSION
     Dosage: 2.5 MG, UNK
     Route: 048
     Dates: start: 20121004, end: 20121108
  2. OLANZAPINE [Concomitant]
  3. QUININE [Concomitant]
  4. FLUOXETINE [Concomitant]
     Dosage: UNK UKN, UNK
  5. ZOLPIDEM [Concomitant]
  6. SIMVASTATIN [Concomitant]
     Dosage: UNK UKN, UNK
  7. METFORMIN [Concomitant]
  8. BRICANYL [Concomitant]
  9. TIOTROPIUM [Concomitant]
     Dosage: UNK UKN, UNK
  10. AMLODIPINE [Concomitant]

REACTIONS (3)
  - Hyponatraemia [Recovered/Resolved]
  - Confusional state [Recovered/Resolved]
  - Convulsion [Recovered/Resolved]
